FAERS Safety Report 10527017 (Version 1)
Quarter: 2014Q4

REPORT INFORMATION
  Report Type: Spontaneous
  Country: CO (occurrence: CO)
  Receive Date: 20141020
  Receipt Date: 20141020
  Transmission Date: 20150528
  Serious: Yes (Death)
  Sender: FDA-Public Use
  Company Number: CO-AMGEN-COLSP2014080366

PATIENT
  Age: 29 Year
  Sex: Female

DRUGS (1)
  1. PEGFILGRASTIM [Suspect]
     Active Substance: PEGFILGRASTIM
     Indication: FEBRILE NEUTROPENIA
     Dosage: UNK
     Route: 042
     Dates: start: 20140820, end: 20140831

REACTIONS (3)
  - Disease progression [Fatal]
  - Cardio-respiratory arrest [Fatal]
  - Epistaxis [Fatal]

NARRATIVE: CASE EVENT DATE: 20140826
